FAERS Safety Report 7166266-2 (Version None)
Quarter: 2010Q4

REPORT INFORMATION
  Report Type: 
  Country: None (occurrence: None)
  Receive Date: 20101216
  Receipt Date: 20101207
  Transmission Date: 20110411
  Serious: Yes (Other)
  Sender: FDA-Public Use
  Company Number: US-JNJFOC-20101007292

PATIENT
  Sex: Female
  Weight: 120.2 kg

DRUGS (9)
  1. REMICADE [Suspect]
     Indication: ANKYLOSING SPONDYLITIS
     Route: 042
  2. REMICADE [Suspect]
     Route: 042
  3. PREDNISONE [Concomitant]
  4. PLAQUENIL [Concomitant]
  5. MOBIC [Concomitant]
  6. METHOTREXATE [Concomitant]
  7. FOLIC ACID [Concomitant]
  8. DARVOCET [Concomitant]
  9. ACIPHEX [Concomitant]

REACTIONS (1)
  - LUPUS-LIKE SYNDROME [None]
